FAERS Safety Report 16805436 (Version 1)
Quarter: 2019Q3

REPORT INFORMATION
  Report Type: Spontaneous
  Country: IT (occurrence: IT)
  Receive Date: 20190913
  Receipt Date: 20190913
  Transmission Date: 20191005
  Serious: Yes (Hospitalization)
  Sender: FDA-Public Use
  Company Number: IT-009507513-1909ITA004667

PATIENT
  Age: 80 Year
  Sex: Male

DRUGS (2)
  1. CUBICIN [Suspect]
     Active Substance: DAPTOMYCIN
     Indication: NOSOCOMIAL INFECTION
     Dosage: 500 MILLIGRAM, QD
     Route: 042
  2. OXACILLIN SODIUM [Suspect]
     Active Substance: OXACILLIN SODIUM
     Indication: NOSOCOMIAL INFECTION
     Dosage: UNK
     Route: 065

REACTIONS (2)
  - Infection [Recovering/Resolving]
  - Clostridium difficile colitis [Recovering/Resolving]
